FAERS Safety Report 19659396 (Version 2)
Quarter: 2021Q3

REPORT INFORMATION
  Report Type: Spontaneous
  Country: US (occurrence: US)
  Receive Date: 20210805
  Receipt Date: 20210812
  Transmission Date: 20211014
  Serious: Yes (Other)
  Sender: FDA-Public Use
  Company Number: US-009507513-2108USA000220

PATIENT
  Age: 4 Decade
  Sex: Male

DRUGS (1)
  1. BRIDION [Suspect]
     Active Substance: SUGAMMADEX
     Dosage: UNK
     Route: 042
     Dates: start: 2020

REACTIONS (2)
  - Anaphylactic reaction [Unknown]
  - Hypotensive crisis [Unknown]

NARRATIVE: CASE EVENT DATE: 2020
